FAERS Safety Report 19747295 (Version 3)
Quarter: 2022Q4

REPORT INFORMATION
  Report Type: Report from Study
  Country: US (occurrence: US)
  Receive Date: 20210825
  Receipt Date: 20221010
  Transmission Date: 20230113
  Serious: Yes (Other)
  Sender: FDA-Public Use
  Company Number: US-TAKEDA-2021TUS052592

PATIENT
  Age: 67 Year
  Sex: Female

DRUGS (1)
  1. VORTIOXETINE [Suspect]
     Active Substance: VORTIOXETINE
     Indication: Product used for unknown indication
     Dosage: 20 MILLIGRAM
     Route: 065

REACTIONS (6)
  - Wrist fracture [Unknown]
  - Fall [Unknown]
  - Frustration tolerance decreased [Unknown]
  - Anxiety [Unknown]
  - Therapy interrupted [Unknown]
  - Mental disorder [Unknown]

NARRATIVE: CASE EVENT DATE: 20210817
